FAERS Safety Report 16143565 (Version 1)
Quarter: 2019Q2

REPORT INFORMATION
  Report Type: Spontaneous
  Country: CN (occurrence: CN)
  Receive Date: 20190401
  Receipt Date: 20190401
  Transmission Date: 20190711
  Serious: Yes (Other)
  Sender: FDA-Public Use
  Company Number: CN-AMERIGEN PHARMACEUTICALS, INC-2019AMG000014

PATIENT

DRUGS (1)
  1. TEMOZOLOMIDE UNKNOWN [Suspect]
     Active Substance: TEMOZOLOMIDE
     Indication: MALIGNANT MELANOMA
     Dosage: UNK
     Route: 065

REACTIONS (4)
  - Treatment failure [Unknown]
  - Metastases to salivary gland [Recovering/Resolving]
  - Product use in unapproved indication [Unknown]
  - Metastases to skin [Recovering/Resolving]
